FAERS Safety Report 19251103 (Version 2)
Quarter: 2021Q2

REPORT INFORMATION
  Report Type: Report from Study
  Country: PT (occurrence: PT)
  Receive Date: 20210512
  Receipt Date: 20210519
  Transmission Date: 20210717
  Serious: Yes (Death)
  Sender: FDA-Public Use
  Company Number: PT-PFIZER INC-2021533442

PATIENT
  Sex: Male

DRUGS (1)
  1. TAFAMIDIS [Suspect]
     Active Substance: TAFAMIDIS MEGLUMINE

REACTIONS (1)
  - Death [Fatal]

NARRATIVE: CASE EVENT DATE: 20210103
